FAERS Safety Report 16945069 (Version 2)
Quarter: 2019Q4

REPORT INFORMATION
  Report Type: Spontaneous
  Country: US (occurrence: US)
  Receive Date: 20191022
  Receipt Date: 20191218
  Transmission Date: 20200122
  Serious: No
  Sender: FDA-Public Use
  Company Number: US-BAYER-2019-179732

PATIENT
  Age: 6 Year
  Sex: Male

DRUGS (1)
  1. KOGENATE FS [Suspect]
     Active Substance: ANTIHEMOPHILIC FACTOR, HUMAN RECOMBINANT
     Dosage: 500+1000=1500 UN
     Route: 042

REACTIONS (5)
  - Fall [None]
  - Gait disturbance [Recovered/Resolved]
  - Joint injury [Recovered/Resolved]
  - Contusion [None]
  - Fall [Recovered/Resolved]

NARRATIVE: CASE EVENT DATE: 20190909
